FAERS Safety Report 13694733 (Version 1)
Quarter: 2017Q2

REPORT INFORMATION
  Report Type: Spontaneous
  Country: TW (occurrence: TW)
  Receive Date: 20170627
  Receipt Date: 20170627
  Transmission Date: 20170830
  Serious: Yes (Hospitalization)
  Sender: FDA-Public Use
  Company Number: TW-ASTRAZENECA-2017SE64024

PATIENT
  Age: 70 Year
  Sex: Male

DRUGS (2)
  1. FORXIGA [Suspect]
     Active Substance: DAPAGLIFLOZIN
     Indication: TYPE 2 DIABETES MELLITUS
     Route: 048
     Dates: start: 20170209
  2. AMARYL-M [Concomitant]
     Dosage: 1.5 TABLET TWO TIMES A DAY

REACTIONS (2)
  - Vertebrobasilar insufficiency [Recovered/Resolved]
  - Hypovolaemia [Unknown]

NARRATIVE: CASE EVENT DATE: 20170308
